FAERS Safety Report 17115919 (Version 18)
Quarter: 2025Q4

REPORT INFORMATION
  Report Type: Spontaneous
  Country: US (occurrence: US)
  Receive Date: 20191205
  Receipt Date: 20251125
  Transmission Date: 20260117
  Serious: Yes (Other)
  Sender: PFIZER
  Company Number: US-PFIZER INC-2019523159

PATIENT
  Age: 72 Year
  Sex: Female
  Weight: 97 kg

DRUGS (4)
  1. IBRANCE [Suspect]
     Active Substance: PALBOCICLIB
     Indication: Breast cancer metastatic
     Dosage: 125 MG, CYCLIC (21 DAYS ON AND 7 DAYS OFF)
     Route: 048
     Dates: start: 201912
  2. IBRANCE [Suspect]
     Active Substance: PALBOCICLIB
     Dosage: 125 MG TAKE 1 TABLET PER DAY FOR 3 WEEKS ON 1 WEEK OFF
  3. IBRANCE [Suspect]
     Active Substance: PALBOCICLIB
     Dosage: 125 MG
  4. LETROZOLE [Concomitant]
     Active Substance: LETROZOLE
     Dosage: 2.5 UNK
     Dates: start: 201912

REACTIONS (21)
  - Metastases to lung [Recovering/Resolving]
  - Breast cancer recurrent [Unknown]
  - Product dose omission in error [Unknown]
  - Product dose omission issue [Unknown]
  - Cough [Not Recovered/Not Resolved]
  - Alopecia [Unknown]
  - Decreased appetite [Unknown]
  - Dysgeusia [Unknown]
  - Abdominal discomfort [Unknown]
  - Fatigue [Unknown]
  - Ageusia [Unknown]
  - Onychoclasis [Unknown]
  - Feeling abnormal [Recovering/Resolving]
  - Frustration tolerance decreased [Unknown]
  - Illness [Unknown]
  - Arthralgia [Unknown]
  - Cerebral disorder [Unknown]
  - Confusional state [Unknown]
  - Brain fog [Unknown]
  - Insomnia [Unknown]
  - Bone pain [Unknown]
